FAERS Safety Report 5651171-0 (Version None)
Quarter: 2008Q1

REPORT INFORMATION
  Report Type: 
  Country: None (occurrence: None)
  Receive Date: 20080305
  Receipt Date: 20080221
  Transmission Date: 20080703
  Serious: Yes (Other)
  Sender: FDA-Public Use
  Company Number: US-BAYER-200810793BCC

PATIENT
  Age: 62 Year
  Sex: Male
  Weight: 43 kg

DRUGS (3)
  1. ASPIRIN [Suspect]
     Indication: ARTHRALGIA
     Route: 048
     Dates: end: 20070201
  2. MULTI-VITAMIN [Concomitant]
     Indication: VITAMIN SUPPLEMENTATION
     Route: 065
  3. NIACIAN [Concomitant]
     Route: 065

REACTIONS (9)
  - ABDOMINAL PAIN UPPER [None]
  - EATING DISORDER [None]
  - FREQUENT BOWEL MOVEMENTS [None]
  - GASTROOESOPHAGEAL REFLUX DISEASE [None]
  - HIGH DENSITY LIPOPROTEIN INCREASED [None]
  - IRRITABLE BOWEL SYNDROME [None]
  - ORAL INTAKE REDUCED [None]
  - PROSTATOMEGALY [None]
  - WEIGHT DECREASED [None]
